FAERS Safety Report 18510250 (Version 1)
Quarter: 2020Q4

REPORT INFORMATION
  Report Type: Spontaneous
  Country: FR (occurrence: FR)
  Receive Date: 20201117
  Receipt Date: 20201117
  Transmission Date: 20210114
  Serious: Yes (Other)
  Sender: FDA-Public Use
  Company Number: FR-SA-2020SA322700

PATIENT

DRUGS (8)
  1. FENTANYL. [Concomitant]
     Active Substance: FENTANYL
     Dosage: 1 DF, Q3D
  2. PARACETAMOL [Concomitant]
     Active Substance: ACETAMINOPHEN
  3. OXAZEPAM. [Concomitant]
     Active Substance: OXAZEPAM
  4. LEVODOPA [Concomitant]
     Active Substance: LEVODOPA
     Dosage: 875 MG, QD
  5. RIFAMPICIN [Suspect]
     Active Substance: RIFAMPIN
     Indication: INFECTION
     Dosage: 600 MG, QD
     Dates: start: 20200520
  6. MORPHINE [Concomitant]
     Active Substance: MORPHINE
     Dosage: 5 MG
  7. MACROGOL STEARATE [Concomitant]
     Active Substance: POLYETHYLENE GLYCOLS
  8. BACTRIM [Concomitant]
     Active Substance: SULFAMETHOXAZOLE\TRIMETHOPRIM
     Indication: INFECTION
     Dosage: 1600 MG, QD
     Dates: start: 20200601, end: 20200629

REACTIONS (1)
  - Anaemia [Not Recovered/Not Resolved]

NARRATIVE: CASE EVENT DATE: 20200629
